FAERS Safety Report 4492043-7 (Version None)
Quarter: 2004Q4

REPORT INFORMATION
  Report Type: 
  Country: None (occurrence: None)
  Receive Date: 20041101
  Receipt Date: 20041014
  Transmission Date: 20050328
  Serious: Yes (Death, Life-Threatening)
  Sender: FDA-Public Use
  Company Number: A01200404729

PATIENT
  Age: 45 Year
  Sex: Female

DRUGS (6)
  1. PLAVIX [Suspect]
     Indication: CORONARY ANGIOPLASTY
     Dosage: 75 MG OD
     Route: 048
     Dates: start: 20040922, end: 20040926
  2. PLAVIX [Suspect]
     Indication: CORONARY ARTERIAL STENT INSERTION
     Dosage: 75 MG OD
     Route: 048
     Dates: start: 20040922, end: 20040926
  3. LIPITOR [Suspect]
     Dosage: 20 MG OD
  4. STUGERON (CINNARIZINE) [Concomitant]
  5. GLYBURIDE [Concomitant]
  6. ASPIRIN [Concomitant]

REACTIONS (11)
  - CULTURE URINE POSITIVE [None]
  - DRUG INTERACTION [None]
  - ESCHERICHIA INFECTION [None]
  - HEPATITIS ACUTE [None]
  - HYPOTENSION [None]
  - LABORATORY TEST ABNORMAL [None]
  - MULTI-ORGAN FAILURE [None]
  - PYREXIA [None]
  - RENAL FAILURE ACUTE [None]
  - SHOCK [None]
  - TOXIC EPIDERMAL NECROLYSIS [None]
